FAERS Safety Report 5108319-6 (Version None)
Quarter: 2006Q3

REPORT INFORMATION
  Report Type: 
  Country: None (occurrence: None)
  Receive Date: 20060914
  Receipt Date: 20060914
  Transmission Date: 20061208
  Serious: Yes (Disabling)
  Sender: FDA-Public Use
  Company Number: None

PATIENT
  Age: 50 Year
  Sex: Male
  Weight: 95 kg

DRUGS (1)
  1. PEN-VEE K [Suspect]
     Indication: LARYNGITIS
     Dosage: ONE PILL 4 FOR DAY
     Dates: start: 20060903, end: 20060903

REACTIONS (4)
  - ASTHENIA [None]
  - BLOOD ALKALINE PHOSPHATASE INCREASED [None]
  - DIARRHOEA [None]
  - HEPATIC PAIN [None]
